FAERS Safety Report 9832954 (Version 3)
Quarter: 2014Q1

REPORT INFORMATION
  Report Type: Spontaneous
  Country: US (occurrence: US)
  Receive Date: 20140121
  Receipt Date: 20140313
  Transmission Date: 20141002
  Serious: Yes (Hospitalization, Other)
  Sender: FDA-Public Use
  Company Number: US-INCYTE CORPORATION-2013IN002585

PATIENT
  Age: 56 Year
  Sex: Male
  Weight: 70.3 kg

DRUGS (10)
  1. JAKAFI [Suspect]
     Indication: MYELOFIBROSIS
     Dosage: 15 MG, BID
     Route: 048
     Dates: start: 20120302, end: 2012
  2. JAKAFI [Suspect]
     Dosage: 10 MG, BID
     Route: 048
     Dates: start: 20130930
  3. PROCRIT                            /00909301/ [Concomitant]
  4. SUMATRIPTAN [Concomitant]
  5. CHANTIX [Concomitant]
  6. COMPAZINE                          /00013302/ [Concomitant]
  7. FLUOXYMESTERONE [Concomitant]
  8. HALOTESTIN [Concomitant]
  9. PREDNISONE [Concomitant]
  10. ZOMIG [Concomitant]

REACTIONS (3)
  - Deep vein thrombosis [Unknown]
  - Stem cell transplant [Unknown]
  - Anaemia [Not Recovered/Not Resolved]
